FAERS Safety Report 4462691-9 (Version None)
Quarter: 2004Q3

REPORT INFORMATION
  Report Type: 
  Country: None (occurrence: None)
  Receive Date: 20040927
  Receipt Date: 20040920
  Transmission Date: 20050211
  Serious: No
  Sender: FDA-Public Use
  Company Number: SUS1-2004-00589

PATIENT
  Age: 31 Year
  Sex: Male
  Weight: 81.6 kg

DRUGS (6)
  1. ADDERALL 10 [Suspect]
     Indication: ATTENTION DEFICIT/HYPERACTIVITY DISORDER
     Dosage: 30 MG, 4X/DAY: QID
     Dates: start: 19990101
  2. XANAX [Concomitant]
  3. ZOLOFT [Concomitant]
  4. ZYPREXA [Concomitant]
  5. PERCOCET [Concomitant]
  6. OXYCONTIN [Concomitant]

REACTIONS (10)
  - DRUG INEFFECTIVE [None]
  - FATIGUE [None]
  - GASTROENTERITIS [None]
  - HEAD INJURY [None]
  - HYPERHIDROSIS [None]
  - LOSS OF CONSCIOUSNESS [None]
  - NARCOLEPSY [None]
  - NAUSEA [None]
  - SOMNOLENCE [None]
  - THERMAL BURN [None]
